FAERS Safety Report 9544071 (Version 1)
Quarter: 2013Q3

REPORT INFORMATION
  Report Type: Spontaneous
  Country: GB (occurrence: GB)
  Receive Date: 20130923
  Receipt Date: 20130923
  Transmission Date: 20140515
  Serious: Yes (Other)
  Sender: FDA-Public Use
  Company Number: GB-TEVA-431728ISR

PATIENT
  Sex: Female

DRUGS (1)
  1. TOPIRAMATE [Suspect]
     Route: 065

REACTIONS (32)
  - Atrial fibrillation [Unknown]
  - Atonic urinary bladder [Unknown]
  - Depression [Unknown]
  - Dyspnoea [Unknown]
  - Dysphagia [Unknown]
  - Pharyngeal oedema [Unknown]
  - Rhinorrhoea [Unknown]
  - Fatigue [Unknown]
  - Decreased appetite [Unknown]
  - Confusional state [Unknown]
  - Hypoaesthesia [Unknown]
  - Visual impairment [Unknown]
  - Dry mouth [Unknown]
  - Alopecia [Unknown]
  - Pruritus [Unknown]
  - Arthralgia [Unknown]
  - Speech disorder [Unknown]
  - Lack of spontaneous speech [Unknown]
  - Dysphonia [Unknown]
  - Flatulence [Unknown]
  - Abdominal distension [Unknown]
  - Urinary incontinence [Unknown]
  - Encopresis [Unknown]
  - Hypoaesthesia [Unknown]
  - Pain in extremity [Unknown]
  - Paraesthesia [Unknown]
  - Diarrhoea [Unknown]
  - Nausea [Unknown]
  - Ear pain [Unknown]
  - Abdominal pain upper [Unknown]
  - Hyperchlorhydria [Unknown]
  - Abdominal distension [Unknown]
